FAERS Safety Report 8813684 (Version 1)
Quarter: 2012Q4

REPORT INFORMATION
  Report Type: Report from Study
  Country: CA (occurrence: CA)
  Receive Date: 20120927
  Receipt Date: 20120927
  Transmission Date: 20130627
  Serious: Yes (Other)
  Sender: FDA-Public Use
  Company Number: CA-JNJFOC-20120907895

PATIENT
  Sex: Male
  Weight: 87.54 kg

DRUGS (1)
  1. STELARA [Suspect]
     Indication: PSORIASIS
     Dates: start: 20090505

REACTIONS (3)
  - Sinusitis [Unknown]
  - Stress [Unknown]
  - Headache [Unknown]
